FAERS Safety Report 18453163 (Version 1)
Quarter: 2020Q4

REPORT INFORMATION
  Report Type: Spontaneous
  Country: US (occurrence: US)
  Receive Date: 20201102
  Receipt Date: 20201102
  Transmission Date: 20210114
  Serious: Yes (Disabling)
  Sender: FDA-Public Use
  Company Number: None

PATIENT
  Age: 38 Year
  Sex: Male
  Weight: 99 kg

DRUGS (1)
  1. LEVOFLOXACIN. [Suspect]
     Active Substance: LEVOFLOXACIN
     Indication: TONSILLITIS
     Route: 048
     Dates: start: 20200722, end: 20200801

REACTIONS (17)
  - Tendonitis [None]
  - Depressed level of consciousness [None]
  - Back pain [None]
  - Gastrointestinal disorder [None]
  - Intestinal haemorrhage [None]
  - Gait disturbance [None]
  - Product dispensing error [None]
  - Dyspnoea [None]
  - Muscle strain [None]
  - Muscle atrophy [None]
  - Fatigue [None]
  - Pain [None]
  - Wrong product administered [None]
  - Neuralgia [None]
  - Hypoaesthesia [None]
  - Vision blurred [None]
  - Condition aggravated [None]

NARRATIVE: CASE EVENT DATE: 20200722
